FAERS Safety Report 13303486 (Version 1)
Quarter: 2017Q1

REPORT INFORMATION
  Report Type: Report from Study
  Country: TR (occurrence: TR)
  Receive Date: 20170307
  Receipt Date: 20170307
  Transmission Date: 20170428
  Serious: Yes (Other)
  Sender: FDA-Public Use
  Company Number: TR-BAUSCH-BL-2017-005672

PATIENT
  Age: 26 Year
  Sex: Male

DRUGS (1)
  1. RIBAVIRIN. [Suspect]
     Active Substance: RIBAVIRIN
     Indication: ANTIVIRAL PROPHYLAXIS
     Dosage: DOSE OF 2 G PER DAY DIVIDED IN FOUR DOSES
     Route: 065

REACTIONS (2)
  - Hepatitis [Recovered/Resolved]
  - Enteritis [Recovered/Resolved]
